FAERS Safety Report 18692118 (Version 1)
Quarter: 2021Q1

REPORT INFORMATION
  Report Type: Spontaneous
  Country: RU (occurrence: RU)
  Receive Date: 20210102
  Receipt Date: 20210102
  Transmission Date: 20210419
  Serious: Yes (Life-Threatening)
  Sender: FDA-Public Use
  Company Number: NVSC2020RU347539

PATIENT
  Age: 64 Year
  Sex: Female

DRUGS (1)
  1. AZARGA [Suspect]
     Active Substance: BRINZOLAMIDE\TIMOLOL MALEATE
     Indication: DIALYSIS EFFICACY TEST
     Dosage: UNK
     Route: 042
     Dates: start: 2019

REACTIONS (1)
  - Laryngeal oedema [Recovered/Resolved with Sequelae]

NARRATIVE: CASE EVENT DATE: 2019
